FAERS Safety Report 23447264 (Version 1)
Quarter: 2024Q1

REPORT INFORMATION
  Report Type: Spontaneous
  Country: FR (occurrence: None)
  Receive Date: 20240126
  Receipt Date: 20240126
  Transmission Date: 20240410
  Serious: Yes (Hospitalization, Other)
  Sender: FDA-Public Use
  Company Number: 2024A020496

PATIENT
  Age: 1 Month
  Sex: Female
  Weight: 5.1 kg

DRUGS (1)
  1. BEYFORTUS [Suspect]
     Active Substance: NIRSEVIMAB-ALIP
     Dosage: UNK, TOTAL ONCE/SINGLE ADMINISTRATION
     Route: 003
     Dates: start: 20231005, end: 20231005

REACTIONS (3)
  - Respiratory syncytial virus bronchiolitis [Recovering/Resolving]
  - Pneumonia respiratory syncytial viral [Recovering/Resolving]
  - Incorrect route of product administration [Unknown]

NARRATIVE: CASE EVENT DATE: 20231005
